FAERS Safety Report 16885843 (Version 2)
Quarter: 2019Q4

REPORT INFORMATION
  Report Type: Spontaneous
  Country: CN (occurrence: CN)
  Receive Date: 20191004
  Receipt Date: 20191016
  Transmission Date: 20200122
  Serious: Yes (Other)
  Sender: FDA-Public Use
  Company Number: CN-ELI_LILLY_AND_COMPANY-CN201909012401

PATIENT
  Age: 34 Year
  Sex: Female
  Weight: 55 kg

DRUGS (3)
  1. CIALIS [Suspect]
     Active Substance: TADALAFIL
     Indication: RISK OF FUTURE PREGNANCY MISCARRIAGE
     Dosage: 10 MG, DAILY
     Route: 065
     Dates: start: 20190817
  2. CIALIS [Suspect]
     Active Substance: TADALAFIL
     Dosage: 20 MG, DAILY
     Route: 065
     Dates: start: 20190917
  3. CIALIS [Suspect]
     Active Substance: TADALAFIL
     Dosage: 20 MG, DAILY
     Route: 065
     Dates: start: 20190827

REACTIONS (4)
  - Maternal exposure during pregnancy [Recovered/Resolved]
  - Uterine disorder [Unknown]
  - Suspected counterfeit product [Unknown]
  - Off label use [Unknown]

NARRATIVE: CASE EVENT DATE: 20190924
